FAERS Safety Report 18192772 (Version 1)
Quarter: 2020Q3

REPORT INFORMATION
  Report Type: Spontaneous
  Country: US (occurrence: US)
  Receive Date: 20200825
  Receipt Date: 20200825
  Transmission Date: 20201103
  Serious: Yes (Hospitalization)
  Sender: FDA-Public Use
  Company Number: US-ELI_LILLY_AND_COMPANY-US202008005652

PATIENT
  Sex: Female

DRUGS (1)
  1. TRULICITY [Suspect]
     Active Substance: DULAGLUTIDE
     Indication: DIABETES MELLITUS
     Dosage: 0.75 MG, UNKNOWN
     Route: 065
     Dates: end: 202001

REACTIONS (5)
  - Pyrexia [Recovered/Resolved]
  - Polyuria [Recovered/Resolved]
  - Kidney infection [Recovered/Resolved]
  - Blood glucose increased [Recovered/Resolved]
  - Sepsis [Recovered/Resolved]
